FAERS Safety Report 24161643 (Version 1)
Quarter: 2024Q3

REPORT INFORMATION
  Report Type: Spontaneous
  Country: US (occurrence: US)
  Receive Date: 20240801
  Receipt Date: 20240801
  Transmission Date: 20241016
  Serious: No
  Sender: SANOFI AVENTIS
  Company Number: US-SA-SAC20240727000014

PATIENT
  Age: 30 Year
  Sex: Male
  Weight: 61 kg

DRUGS (2)
  1. DUPIXENT [Suspect]
     Active Substance: DUPILUMAB
     Indication: Dermatitis atopic
     Dosage: 300 MG, QOW
     Route: 058
  2. RINVOQ [Concomitant]
     Active Substance: UPADACITINIB

REACTIONS (5)
  - Rash papular [Recovered/Resolved]
  - Oral discomfort [Recovering/Resolving]
  - Dry mouth [Unknown]
  - Palatal swelling [Unknown]
  - Tongue coated [Unknown]
